FAERS Safety Report 9188531 (Version 1)
Quarter: 2012Q4

REPORT INFORMATION
  Report Type: 
  Country: GB (occurrence: GB)
  Receive Date: 20121205
  Receipt Date: 20121205
  Transmission Date: 20130627
  Serious: Yes (Other)
  Sender: FDA-Public Use
  Company Number: PHHY2012GB109571

PATIENT
  Age: 67 Year
  Sex: Female

DRUGS (4)
  1. LANSOPRAZOLE [Suspect]
     Indication: GASTROOESOPHAGEAL REFLUX DISEASE
     Dosage: 15 mg, QD
  2. LANSOPRAZOLE [Suspect]
     Dosage: 30 mg, QD
  3. FLUOXETINE [Suspect]
  4. STEROIDS NOS [Concomitant]

REACTIONS (6)
  - Vitamin D deficiency [Unknown]
  - Arthritis [Unknown]
  - Malaise [Unknown]
  - Fatigue [Unknown]
  - Headache [Unknown]
  - Dizziness [Unknown]
